FAERS Safety Report 5922609-6 (Version None)
Quarter: 2008Q4

REPORT INFORMATION
  Report Type: 
  Country: None (occurrence: None)
  Receive Date: 20081017
  Receipt Date: 20081010
  Transmission Date: 20090506
  Serious: Yes (Hospitalization)
  Sender: FDA-Public Use
  Company Number: PHHY2008BE24259

PATIENT
  Sex: Female

DRUGS (9)
  1. RASILEZ [Suspect]
     Indication: HYPERTENSION
     Dosage: 150 MG DAILY
     Route: 048
     Dates: start: 20080825, end: 20080918
  2. AMARYL [Concomitant]
  3. METFORMAX [Concomitant]
  4. PLAVIX [Concomitant]
  5. ASPIRIN [Concomitant]
  6. CORUNO [Concomitant]
  7. SIMVASTATIN [Concomitant]
  8. CEDOCARD [Concomitant]
  9. CAPTOPRIL [Concomitant]

REACTIONS (4)
  - BLOOD ELECTROLYTES ABNORMAL [None]
  - BLOOD UREA INCREASED [None]
  - HAEMOLYSIS [None]
  - HYPERKALAEMIA [None]
